FAERS Safety Report 12143658 (Version 1)
Quarter: 2016Q1

REPORT INFORMATION
  Report Type: Spontaneous
  Country: US (occurrence: US)
  Receive Date: 20160304
  Receipt Date: 20160304
  Transmission Date: 20160526
  Serious: No
  Sender: FDA-Public Use
  Company Number: US-JNJFOC-20160122915

PATIENT
  Age: 34 Year
  Sex: Male
  Weight: 103.42 kg

DRUGS (2)
  1. ZYRTEC [Suspect]
     Active Substance: CETIRIZINE HYDROCHLORIDE
     Route: 048
  2. ZYRTEC [Suspect]
     Active Substance: CETIRIZINE HYDROCHLORIDE
     Indication: EXPOSURE TO TOXIC AGENT
     Dosage: 3 TABLETS EVERY 12 HOURS (A TOTAL OF 6 TABLETS)
     Route: 048
     Dates: start: 20160126

REACTIONS (4)
  - Expired product administered [Unknown]
  - Overdose [Unknown]
  - Off label use [Unknown]
  - Product use issue [Unknown]
